FAERS Safety Report 13912862 (Version 1)
Quarter: 2017Q3

REPORT INFORMATION
  Report Type: Report from Study
  Country: CR (occurrence: CR)
  Receive Date: 20170828
  Receipt Date: 20170828
  Transmission Date: 20171127
  Serious: Yes (Life-Threatening, Hospitalization, Other)
  Sender: FDA-Public Use
  Company Number: PHHY2016CR033879

PATIENT
  Age: 49 Year
  Sex: Female
  Weight: 88 kg

DRUGS (10)
  1. XOLAIR [Suspect]
     Active Substance: OMALIZUMAB
     Route: 065
     Dates: start: 20170726
  2. ALLEGRA [Concomitant]
     Active Substance: FEXOFENADINE HYDROCHLORIDE
     Indication: PRODUCT USED FOR UNKNOWN INDICATION
     Route: 065
  3. MONTELUKAST SODIUM. [Suspect]
     Active Substance: MONTELUKAST SODIUM
     Indication: ASTHMA
     Route: 065
  4. SOLU-MEDROL [Concomitant]
     Active Substance: METHYLPREDNISOLONE SODIUM SUCCINATE
     Indication: ASTHMA
     Route: 065
  5. XOLAIR [Suspect]
     Active Substance: OMALIZUMAB
     Indication: PLATELET COUNT DECREASED
     Dosage: 2 DF, QMO (TWO MONTHLY)
     Route: 065
     Dates: start: 20160208
  6. SERETIDE [Concomitant]
     Active Substance: FLUTICASONE PROPIONATE\SALMETEROL XINAFOATE
     Indication: ASTHMA
     Route: 065
  7. SALBUTAMOL [Concomitant]
     Active Substance: ALBUTEROL
     Indication: ASTHMA
     Dosage: PRN
     Route: 065
  8. IRON [Suspect]
     Active Substance: IRON
     Indication: PRODUCT USED FOR UNKNOWN INDICATION
     Route: 065
  9. LORATADINE. [Concomitant]
     Active Substance: LORATADINE
     Indication: ASTHMA
     Route: 065
  10. XOLAIR [Suspect]
     Active Substance: OMALIZUMAB
     Indication: ASTHMA
     Dosage: 2 DF, QMO (TWO MONTHLY)
     Route: 065
     Dates: start: 2010

REACTIONS (26)
  - Dengue fever [Unknown]
  - Abdominal discomfort [Unknown]
  - Fatigue [Unknown]
  - Abdominal pain upper [Unknown]
  - Dysphonia [Unknown]
  - Asthmatic crisis [Recovered/Resolved]
  - Oropharyngeal pain [Unknown]
  - Nausea [Recovered/Resolved]
  - Epigastric discomfort [Recovered/Resolved]
  - Hyperhidrosis [Unknown]
  - Aphonia [Unknown]
  - Acute respiratory failure [Recovering/Resolving]
  - Contusion [Unknown]
  - Chest discomfort [Unknown]
  - Dyspnoea [Unknown]
  - Anxiety [Unknown]
  - Asthma [Unknown]
  - Memory impairment [Unknown]
  - Malaise [Unknown]
  - Headache [Recovered/Resolved]
  - Peptic ulcer [Unknown]
  - Hiatus hernia [Unknown]
  - Oropharyngeal discomfort [Unknown]
  - Gastrooesophageal reflux disease [Unknown]
  - Skin induration [Unknown]
  - Decreased appetite [Unknown]
